FAERS Safety Report 7002586-X (Version None)
Quarter: 2010Q3

REPORT INFORMATION
  Report Type: 
  Country: None (occurrence: None)
  Receive Date: 20100920
  Receipt Date: 20070725
  Transmission Date: 20110219
  Serious: Yes (Hospitalization, Other)
  Sender: FDA-Public Use
  Company Number: US-ASTRAZENECA-2006UW26556

PATIENT
  Age: 35 Year
  Sex: Female
  Weight: 140.6 kg

DRUGS (26)
  1. SEROQUEL [Suspect]
     Indication: ANXIETY
     Route: 048
     Dates: start: 20010101, end: 20060101
  2. SEROQUEL [Suspect]
     Indication: DEPRESSION
     Route: 048
     Dates: start: 20010101, end: 20060101
  3. SEROQUEL [Suspect]
     Indication: OBSESSIVE-COMPULSIVE DISORDER
     Route: 048
     Dates: start: 20010101, end: 20060101
  4. SEROQUEL [Suspect]
     Dosage: 25-325 MG
     Route: 048
     Dates: start: 20020618
  5. SEROQUEL [Suspect]
     Dosage: 25-325 MG
     Route: 048
     Dates: start: 20020618
  6. SEROQUEL [Suspect]
     Dosage: 25-325 MG
     Route: 048
     Dates: start: 20020618
  7. SEROQUEL [Suspect]
     Route: 048
     Dates: start: 20060101
  8. SEROQUEL [Suspect]
     Route: 048
     Dates: start: 20060101
  9. SEROQUEL [Suspect]
     Route: 048
     Dates: start: 20060101
  10. OLANZAPINE [Suspect]
     Dates: start: 20050101
  11. FLUOXETINE [Concomitant]
     Route: 048
     Dates: start: 20030115
  12. PROTONIX [Concomitant]
     Route: 048
     Dates: start: 20020619
  13. REMERON [Concomitant]
     Dates: start: 20030123
  14. SKELAXIN [Concomitant]
     Dates: start: 20030225
  15. VIAGRA [Concomitant]
     Dates: start: 20030226
  16. GLUCOTROL [Concomitant]
     Dosage: 5-10 MG
     Dates: start: 20030326
  17. AVANDIA [Concomitant]
     Dates: start: 20030610
  18. DEPAKOTE [Concomitant]
  19. CLONAZEPAM [Concomitant]
     Dates: start: 20030813
  20. LIPITOR [Concomitant]
     Dates: start: 20031010
  21. PREVACID [Concomitant]
     Dates: start: 20040303
  22. LEXAPRO [Concomitant]
     Dosage: 10-20 MG
     Dates: start: 20030813
  23. TOPAMAX [Concomitant]
     Dosage: 25-200 MG
     Dates: start: 20050211
  24. GLUCOPHAGE XR [Concomitant]
     Dosage: 500-2000 MG
     Dates: start: 20030225
  25. DICYCLOMINE [Concomitant]
     Dates: start: 20030304
  26. IBU [Concomitant]
     Dates: start: 20030312

REACTIONS (6)
  - DEEP VEIN THROMBOSIS [None]
  - DIABETES MELLITUS [None]
  - HYPERGLYCAEMIA [None]
  - HYPOGLYCAEMIA [None]
  - TYPE 1 DIABETES MELLITUS [None]
  - TYPE 2 DIABETES MELLITUS [None]
